FAERS Safety Report 9247434 (Version 2)
Quarter: 2013Q2

REPORT INFORMATION
  Report Type: Spontaneous
  Country: US (occurrence: US)
  Receive Date: 20130423
  Receipt Date: 20130423
  Transmission Date: 20140414
  Serious: No
  Sender: FDA-Public Use
  Company Number: US-MYLANLABS-2013S1005519

PATIENT
  Age: 55 Year
  Sex: Male
  Weight: 58.97 kg

DRUGS (2)
  1. PHENYTOIN CHEWABLE TABLETS USP [Suspect]
     Indication: CONVULSION
     Route: 048
     Dates: start: 20130302, end: 20130306
  2. PHENYTOIN [Concomitant]
     Indication: CONVULSION
     Dosage: CAPSULE

REACTIONS (2)
  - Feeling abnormal [Not Recovered/Not Resolved]
  - Epileptic aura [Not Recovered/Not Resolved]
